APPROVED DRUG PRODUCT: PROSTEP
Active Ingredient: NICOTINE
Strength: 22MG/24HR
Dosage Form/Route: FILM, EXTENDED RELEASE;TRANSDERMAL
Application: N019983 | Product #004
Applicant: AVEVA DRUG DELIVERY SYSTEMS INC
Approved: Dec 23, 1998 | RLD: No | RS: No | Type: DISCN